FAERS Safety Report 5238665-7 (Version None)
Quarter: 2007Q1

REPORT INFORMATION
  Report Type: 
  Country: None (occurrence: None)
  Receive Date: 20070214
  Receipt Date: 20070214
  Transmission Date: 20070707
  Serious: Yes (Hospitalization)
  Sender: FDA-Public Use
  Company Number: None

PATIENT
  Sex: Male
  Weight: 76.2043 kg

DRUGS (22)
  1. ACETAMINOPHEN AND HYDROCODONE BITARTRATE [Suspect]
     Indication: PAIN
     Dosage: 1 TAB Q6-8H
     Dates: start: 20060614, end: 20061105
  2. LORAZEPAM [Suspect]
     Indication: ANXIETY
     Dosage: 1 MG BID PRN
     Dates: start: 20010320, end: 20061105
  3. LORAZEPAM [Suspect]
     Indication: SLEEP DISORDER
     Dosage: 1 MG BID PRN
     Dates: start: 20010320, end: 20061105
  4. FUROSEMIDE [Suspect]
     Dosage: 30 MG DAILY
  5. 0.25% MENTHOL IN AQUAPHOR [Concomitant]
  6. ACCU-CHEK COMFORT CV (GLUCOSE) [Concomitant]
  7. ALBUTEROL 90/IPRATROPINE [Concomitant]
  8. ASPIRIN [Concomitant]
  9. BRIEF, PROTECTION PLUS MEDIUM [Concomitant]
  10. CREON [Concomitant]
  11. CYANOCOBALAMIN [Concomitant]
  12. DILTIAZEM HCL [Concomitant]
  13. ENLIVE PEACH [Concomitant]
  14. FERROUS SULFATE [Concomitant]
  15. FOLIC ACID [Concomitant]
  16. FUROSEMIDE [Concomitant]
  17. GUAIFENESIN [Concomitant]
  18. HYDROCODONE /ACETAMINOPHEN [Concomitant]
  19. LORAZEPAM [Concomitant]
  20. RANITIDINE HCL [Concomitant]
  21. SENNOSIDES [Concomitant]
  22. TIMOLOL MALEATE [Concomitant]

REACTIONS (4)
  - BLOOD CREATININE INCREASED [None]
  - CONFUSIONAL STATE [None]
  - DEHYDRATION [None]
  - FATIGUE [None]
